FAERS Safety Report 23997068 (Version 1)
Quarter: 2024Q2

REPORT INFORMATION
  Report Type: Spontaneous
  Country: TH (occurrence: TH)
  Receive Date: 20240621
  Receipt Date: 20240621
  Transmission Date: 20240716
  Serious: Yes (Hospitalization, Other)
  Sender: FDA-Public Use
  Company Number: TH-BoehringerIngelheim-2024-BI-032273

PATIENT
  Age: 63 Year
  Sex: Male

DRUGS (6)
  1. PRADAXA [Suspect]
     Active Substance: DABIGATRAN ETEXILATE MESYLATE
     Indication: Atrial fibrillation
     Dosage: PRADAXA DOSE: 150 MG 1X2 PO PC
     Route: 048
  2. MORPHINE [Concomitant]
     Active Substance: MORPHINE
     Indication: Product used for unknown indication
     Dosage: MORPHINE SOL. 10 MG/5ML 3 ML PO PRN Q 2-4 HR
     Route: 048
  3. DIGOXIN [Concomitant]
     Active Substance: DIGOXIN
     Indication: Product used for unknown indication
     Dosage: DIGOXIN 0.25 MG 1/2X1 PO PC
     Route: 048
  4. BISOPROLOL [Concomitant]
     Active Substance: BISOPROLOL\BISOPROLOL FUMARATE
     Indication: Product used for unknown indication
     Dosage: BISOPROLOL 5 MG 1X1 PO PC
     Route: 048
  5. PAZOPANIB [Concomitant]
     Active Substance: PAZOPANIB
     Indication: Product used for unknown indication
     Dosage: PAZOPANIB 200 MG 4X1 PO AC
     Route: 048
  6. OMEPRAZOLE [Concomitant]
     Active Substance: DONEPEZIL HYDROCHLORIDE\OMEPRAZOLE\OMEPRAZOLE MAGNESIUM
     Indication: Product used for unknown indication
     Dosage: OMEPRAZOLE 20 MG 1X1 PO AC
     Route: 048

REACTIONS (6)
  - Loss of consciousness [Unknown]
  - Metastases to central nervous system [Unknown]
  - Craniotomy [Unknown]
  - Brain neoplasm [Unknown]
  - Cerebral haemorrhage [Unknown]
  - Somnolence [Unknown]
